FAERS Safety Report 9119972 (Version 1)
Quarter: 2013Q1

REPORT INFORMATION
  Report Type: Spontaneous
  Country: GB (occurrence: GB)
  Receive Date: 20130226
  Receipt Date: 20130226
  Transmission Date: 20140127
  Serious: Yes (Hospitalization, Congenital Anomaly)
  Sender: FDA-Public Use
  Company Number: GB-MYLANLABS-2013S1003283

PATIENT
  Sex: Male

DRUGS (3)
  1. WARFARIN [Suspect]
     Indication: ANTICOAGULANT THERAPY
     Route: 064
  2. WARFARIN [Suspect]
     Indication: ANTICOAGULANT THERAPY
     Dosage: 5-6MG WITH INR 3-4.7
     Route: 064
  3. ENOXAPARIN SODIUM [Concomitant]
     Indication: ANTICOAGULANT THERAPY
     Route: 064

REACTIONS (4)
  - Foetal warfarin syndrome [Recovering/Resolving]
  - Coarctation of the aorta [Not Recovered/Not Resolved]
  - Ventricular septal defect [Not Recovered/Not Resolved]
  - Exposure during pregnancy [Recovering/Resolving]
